FAERS Safety Report 11200820 (Version 1)
Quarter: 2015Q2

REPORT INFORMATION
  Report Type: Report from Study
  Country: FR (occurrence: FR)
  Receive Date: 20150618
  Receipt Date: 20150618
  Transmission Date: 20150821
  Serious: Yes (Disabling)
  Sender: FDA-Public Use
  Company Number: FR-ABBVIE-15P-056-1411040-00

PATIENT
  Sex: Male

DRUGS (1)
  1. DUODOPA [Suspect]
     Active Substance: CARBIDOPA\LEVODOPA
     Indication: PARKINSON^S DISEASE
     Dosage: SEE NARRATIVE
     Route: 050

REACTIONS (8)
  - Aphasia [Unknown]
  - Stoma site erythema [Unknown]
  - Drug ineffective [Unknown]
  - On and off phenomenon [Unknown]
  - Drug prescribing error [Unknown]
  - Gastrointestinal stoma complication [Unknown]
  - Condition aggravated [Unknown]
  - Mobility decreased [Unknown]
